FAERS Safety Report 18948633 (Version 2)
Quarter: 2021Q2

REPORT INFORMATION
  Report Type: Report from Study
  Country: US (occurrence: US)
  Receive Date: 20210226
  Receipt Date: 20210417
  Transmission Date: 20210717
  Serious: No
  Sender: FDA-Public Use
  Company Number: NVSC2020US349049

PATIENT
  Age: 64 Year
  Sex: Female

DRUGS (2)
  1. COSENTYX [Suspect]
     Active Substance: SECUKINUMAB
     Indication: PSORIATIC ARTHROPATHY
     Dosage: UNK
     Route: 058
     Dates: start: 20171201
  2. COSENTYX [Suspect]
     Active Substance: SECUKINUMAB
     Dosage: 300 MG, TIW
     Route: 058
     Dates: start: 2017

REACTIONS (4)
  - Suspected COVID-19 [Recovered/Resolved with Sequelae]
  - Asthenia [Unknown]
  - Pain in extremity [Unknown]
  - Pyrexia [Unknown]

NARRATIVE: CASE EVENT DATE: 202001
